FAERS Safety Report 7117844-8 (Version None)
Quarter: 2010Q4

REPORT INFORMATION
  Report Type: 
  Country: None (occurrence: None)
  Receive Date: 20101118
  Receipt Date: 20101118
  Transmission Date: 20110411
  Serious: Yes (Hospitalization)
  Sender: FDA-Public Use
  Company Number: None

PATIENT
  Age: 60 Year
  Sex: Female
  Weight: 134 kg

DRUGS (1)
  1. VANCOMYCIN [Suspect]
     Indication: VULVAL ABSCESS
     Dosage: 2000MG EVERY 24 HOURS IV
     Route: 042
     Dates: start: 20101110, end: 20101113

REACTIONS (1)
  - RENAL FAILURE ACUTE [None]
